FAERS Safety Report 7658448-8 (Version None)
Quarter: 2011Q3

REPORT INFORMATION
  Report Type: 
  Country: None (occurrence: None)
  Receive Date: 20110805
  Receipt Date: 20110801
  Transmission Date: 20111222
  Serious: No
  Sender: FDA-Public Use
  Company Number: US-PFIZER INC-2011175619

PATIENT
  Age: 51 Year
  Sex: Female

DRUGS (1)
  1. TRAZODONE HCL [Suspect]
     Dosage: UNK

REACTIONS (2)
  - ABNORMAL BEHAVIOUR [None]
  - DRUG HYPERSENSITIVITY [None]
